FAERS Safety Report 5358782-0 (Version None)
Quarter: 2007Q2

REPORT INFORMATION
  Report Type: 
  Country: None (occurrence: None)
  Receive Date: 20070615
  Receipt Date: 20070608
  Transmission Date: 20071010
  Serious: Yes (Death, Hospitalization)
  Sender: FDA-Public Use
  Company Number: KR-AVENTIS-200711457GDDC

PATIENT
  Age: 64 Year
  Sex: Female

DRUGS (6)
  1. DOCETAXEL [Suspect]
     Indication: NON-SMALL CELL LUNG CANCER
     Route: 042
     Dates: start: 20070124, end: 20070124
  2. DOCETAXEL [Suspect]
     Dosage: DOSE: BATCH NUMBER D6C195 FOR DOCETAXEL GIVEN ON 11-OCT-06, 01-NOV-06 AND 23-NOV-06
  3. DOCETAXEL [Suspect]
     Dosage: DOSE: BATCH NUMBER D6A073 FOR DOCETAXEL GIVEN ON 19-SEP-06
  4. DOCETAXEL [Suspect]
     Dosage: DOSE: BATCH NUMBER D6C434 FOR DOCETAXEL GIVEN ON 13-DEC-06, 03-JAN-07 AND 24-JAN-07
  5. AMITRIPTYLINE HCL [Concomitant]
     Dates: start: 20070103
  6. ACETATE [Concomitant]
     Dates: start: 20060101, end: 20070124

REACTIONS (2)
  - DIARRHOEA [None]
  - DYSPNOEA [None]
